FAERS Safety Report 25980983 (Version 2)
Quarter: 2025Q4

REPORT INFORMATION
  Report Type: Spontaneous
  Country: EU (occurrence: EU)
  Receive Date: 20251030
  Receipt Date: 20251031
  Transmission Date: 20260118
  Serious: Yes (Hospitalization)
  Sender: MYLAN
  Company Number: None

PATIENT
  Age: 8 Year
  Sex: Female

DRUGS (2)
  1. LYRICA [Suspect]
     Active Substance: PREGABALIN
     Indication: Pain
     Dosage: 150 MILLIGRAM,1 TOTAL
     Dates: start: 20250928, end: 20250928
  2. ZOPICLONE [Suspect]
     Active Substance: ZOPICLONE
     Indication: Pain
     Dosage: SEE COMMENTS (SCORED FILM-COATED TABLET)
     Dates: start: 20250928, end: 20250928

REACTIONS (5)
  - Chest pain [Recovered/Resolved]
  - Anxiety [Recovered/Resolved]
  - Hallucination, visual [Recovered/Resolved]
  - Somnolence [Recovered/Resolved]
  - Wrong product administered [Recovered/Resolved]

NARRATIVE: CASE EVENT DATE: 20250928
